FAERS Safety Report 20995531 (Version 8)
Quarter: 2023Q1

REPORT INFORMATION
  Report Type: Spontaneous
  Country: US (occurrence: US)
  Receive Date: 20220622
  Receipt Date: 20230131
  Transmission Date: 20230417
  Serious: Yes (Other)
  Sender: FDA-Public Use
  Company Number: US-BEH-2022146678

PATIENT
  Sex: Male

DRUGS (18)
  1. IDELVION [Suspect]
     Active Substance: COAGULATION FACTOR IX RECOMBINANT HUMAN
     Indication: Factor IX deficiency
     Dosage: 3000 INTERNATIONAL UNIT, QW
     Route: 042
     Dates: start: 202203
  2. IDELVION [Suspect]
     Active Substance: COAGULATION FACTOR IX RECOMBINANT HUMAN
     Indication: Factor IX deficiency
     Dosage: 3000 INTERNATIONAL UNIT, QW
     Route: 042
     Dates: start: 202203
  3. IDELVION [Suspect]
     Active Substance: COAGULATION FACTOR IX RECOMBINANT HUMAN
     Indication: Prophylaxis
     Dosage: 1032  INTERNATIONAL UNIT, QW
     Route: 058
     Dates: start: 20220330
  4. IDELVION [Suspect]
     Active Substance: COAGULATION FACTOR IX RECOMBINANT HUMAN
     Indication: Prophylaxis
     Dosage: 1032  INTERNATIONAL UNIT, QW
     Route: 058
     Dates: start: 20220330
  5. IDELVION [Suspect]
     Active Substance: COAGULATION FACTOR IX RECOMBINANT HUMAN
     Indication: Haemorrhage
     Dosage: 2019 INTERNATIONAL UNIT, QW
     Route: 058
     Dates: start: 20220330
  6. IDELVION [Suspect]
     Active Substance: COAGULATION FACTOR IX RECOMBINANT HUMAN
     Indication: Haemorrhage
     Dosage: 2019 INTERNATIONAL UNIT, QW
     Route: 058
     Dates: start: 20220330
  7. IDELVION [Suspect]
     Active Substance: COAGULATION FACTOR IX RECOMBINANT HUMAN
     Dosage: 1000 INTERNATIONAL UNIT, QW
     Route: 042
     Dates: start: 20220407
  8. IDELVION [Suspect]
     Active Substance: COAGULATION FACTOR IX RECOMBINANT HUMAN
     Dosage: 1000 INTERNATIONAL UNIT, QW
     Route: 042
     Dates: start: 20220407
  9. IDELVION [Suspect]
     Active Substance: COAGULATION FACTOR IX RECOMBINANT HUMAN
     Dosage: 2000 INTERNATIONAL UNIT, QW
     Route: 042
     Dates: start: 20220330
  10. IDELVION [Suspect]
     Active Substance: COAGULATION FACTOR IX RECOMBINANT HUMAN
     Dosage: 2000 INTERNATIONAL UNIT, QW
     Route: 042
     Dates: start: 20220330
  11. IDELVION [Suspect]
     Active Substance: COAGULATION FACTOR IX RECOMBINANT HUMAN
     Dosage: 3000 INTERNATIONAL UNIT, QW
     Route: 042
     Dates: start: 20220330
  12. IDELVION [Suspect]
     Active Substance: COAGULATION FACTOR IX RECOMBINANT HUMAN
     Dosage: 3000 INTERNATIONAL UNIT, QW
     Route: 042
     Dates: start: 20220330
  13. IDELVION [Suspect]
     Active Substance: COAGULATION FACTOR IX RECOMBINANT HUMAN
     Dosage: 1000 INTERNATIONAL UNIT, QW
     Route: 042
     Dates: start: 20220308
  14. IDELVION [Suspect]
     Active Substance: COAGULATION FACTOR IX RECOMBINANT HUMAN
     Dosage: 1000 INTERNATIONAL UNIT, QW
     Route: 042
     Dates: start: 20220308
  15. IDELVION [Suspect]
     Active Substance: COAGULATION FACTOR IX RECOMBINANT HUMAN
     Dosage: 2000 INTERNATIONAL UNIT, QW
     Route: 042
     Dates: start: 20220308
  16. IDELVION [Suspect]
     Active Substance: COAGULATION FACTOR IX RECOMBINANT HUMAN
     Dosage: 2000 INTERNATIONAL UNIT, QW
     Route: 042
     Dates: start: 20220308
  17. IDELVION [Suspect]
     Active Substance: COAGULATION FACTOR IX RECOMBINANT HUMAN
     Dosage: UNK
     Route: 042
  18. IDELVION [Suspect]
     Active Substance: COAGULATION FACTOR IX RECOMBINANT HUMAN
     Dosage: UNK
     Route: 042

REACTIONS (13)
  - Haemarthrosis [Unknown]
  - Haemarthrosis [Unknown]
  - Joint injury [Unknown]
  - Haemorrhage [Unknown]
  - Product dose omission issue [Unknown]
  - No adverse event [Unknown]
  - Off label use [Unknown]
  - Haemarthrosis [Recovered/Resolved]
  - Back pain [Not Recovered/Not Resolved]
  - Muscle haemorrhage [Not Recovered/Not Resolved]
  - Haemarthrosis [Unknown]
  - No adverse event [Unknown]
  - Product dose omission issue [Unknown]
